FAERS Safety Report 5422432-5 (Version None)
Quarter: 2007Q3

REPORT INFORMATION
  Report Type: 
  Country: None (occurrence: None)
  Receive Date: 20070822
  Receipt Date: 20070817
  Transmission Date: 20080115
  Serious: Yes (Hospitalization)
  Sender: FDA-Public Use
  Company Number: B0483713A

PATIENT
  Age: 61 Year
  Sex: Female

DRUGS (5)
  1. ZANTAC [Suspect]
     Route: 065
     Dates: start: 20040101, end: 20070101
  2. ESBERIVEN FORT [Suspect]
     Indication: VARICOSE VEIN
     Route: 048
     Dates: start: 20070101, end: 20070613
  3. ZESTRIL [Suspect]
     Route: 065
     Dates: start: 20040101, end: 20070101
  4. OPTRUMA [Suspect]
     Route: 065
     Dates: start: 20040101, end: 20070101
  5. PIROXICAM [Suspect]
     Route: 065
     Dates: start: 20040101, end: 20070101

REACTIONS (3)
  - ASTHENIA [None]
  - HEPATITIS [None]
  - TRANSAMINASES INCREASED [None]
